FAERS Safety Report 4424826-3 (Version None)
Quarter: 2004Q3

REPORT INFORMATION
  Report Type: 
  Country: None (occurrence: None)
  Receive Date: 20040809
  Receipt Date: 20040728
  Transmission Date: 20050211
  Serious: Yes (Hospitalization)
  Sender: FDA-Public Use
  Company Number: 01P-056-0109441-00

PATIENT
  Age: 40 Year
  Sex: Male

DRUGS (5)
  1. DEPAKINE TABLETS (SODIUM VALPROATE) (SODIUM VALPROATE) (SODIUM VALPROA [Suspect]
     Indication: EPILEPSY
     Dosage: SEE IMAGE
     Route: 048
  2. TOPIRAMATE [Suspect]
     Indication: EPILEPSY
     Dosage: 700 MG, 1 IN 1 D, PER ORAL
     Route: 048
     Dates: start: 19921201, end: 20000522
  3. CARBAMAZEPINE [Concomitant]
  4. CLOBAZAM [Concomitant]
  5. LAMOTRIGINE [Concomitant]

REACTIONS (6)
  - CONVULSION [None]
  - DRUG INTERACTION [None]
  - ENCEPHALOPATHY [None]
  - EPILEPSY [None]
  - HYPERAMMONAEMIA [None]
  - TREMOR [None]
